FAERS Safety Report 14352463 (Version 1)
Quarter: 2018Q1

REPORT INFORMATION
  Report Type: Spontaneous
  Country: DE (occurrence: DE)
  Receive Date: 20180104
  Receipt Date: 20180104
  Transmission Date: 20180509
  Serious: Yes (Other)
  Sender: FDA-Public Use
  Company Number: DE-MYLANLABS-2018M1000564

PATIENT
  Age: 28 Year
  Sex: Male

DRUGS (12)
  1. CLOFARABINE. [Suspect]
     Active Substance: CLOFARABINE
     Indication: MYELOPROLIFERATIVE NEOPLASM
  2. ENDOXAN                            /00021102/ [Suspect]
     Active Substance: CYCLOPHOSPHAMIDE
     Indication: BONE MARROW CONDITIONING REGIMEN
     Route: 065
  3. CLOFARABINE. [Suspect]
     Active Substance: CLOFARABINE
     Indication: CYTOREDUCTIVE SURGERY
     Dosage: UNK
     Route: 042
  4. ACICLOVIR [Concomitant]
     Active Substance: ACYCLOVIR
     Indication: ANTIVIRAL PROPHYLAXIS
     Dosage: FROM DAY+1 UNTIL RECOVERY OF NEUTROPHILS
     Route: 065
  5. METRONIDAZOLE. [Concomitant]
     Active Substance: METRONIDAZOLE
     Indication: ANTIBIOTIC PROPHYLAXIS
     Dosage: WITH THE BEGINNING OF RIC UNTIL DAY +35
     Route: 065
  6. CYCLOSPORINE. [Concomitant]
     Active Substance: CYCLOSPORINE
     Indication: PROPHYLAXIS AGAINST GRAFT VERSUS HOST DISEASE
     Dosage: FROM  DAY -1 (TARGET TROUGH LEVEL: 120-150 NG/ML), TAPERED FROM DAYS +70 TO +90
     Route: 065
  7. MYCOPHENOLATE MOFETIL. [Concomitant]
     Active Substance: MYCOPHENOLATE MOFETIL
     Indication: PROPHYLAXIS AGAINST GRAFT VERSUS HOST DISEASE
     Dosage: STARTING AT THE DAY OF  TRANSPLANTATION, STOPPED AT DAY +50
     Route: 065
  8. LEVOFLOXACIN. [Concomitant]
     Active Substance: LEVOFLOXACIN
     Indication: ANTIBIOTIC PROPHYLAXIS
     Dosage: WITH THE BEGINNING OF RIC UNTIL DAY +35
     Route: 065
  9. FLUCONAZOLE. [Concomitant]
     Active Substance: FLUCONAZOLE
     Indication: ANTIFUNGAL PROPHYLAXIS
     Dosage: UNTIL DAY +80
     Route: 065
  10. CYTARABINE MYLAN [Suspect]
     Active Substance: CYTARABINE
     Indication: CYTOREDUCTIVE SURGERY
     Dosage: UNK
     Route: 042
  11. CYTARABINE MYLAN [Suspect]
     Active Substance: CYTARABINE
     Indication: MYELOPROLIFERATIVE NEOPLASM
  12. ANTITHYMOCYTE IMMUNOGLOBULIN (RABBIT) [Suspect]
     Active Substance: LAPINE T-LYMPHOCYTE IMMUNE GLOBULIN
     Indication: BONE MARROW CONDITIONING REGIMEN
     Route: 065

REACTIONS (2)
  - Cerebral haemorrhage [Unknown]
  - Staphylococcal infection [Unknown]
